FAERS Safety Report 5809809-0 (Version None)
Quarter: 2008Q3

REPORT INFORMATION
  Report Type: 
  Country: None (occurrence: None)
  Receive Date: 20080714
  Receipt Date: 20080714
  Transmission Date: 20090109
  Serious: Yes (Other)
  Sender: FDA-Public Use
  Company Number: None

PATIENT
  Age: 38 Year
  Sex: Female
  Weight: 79.3795 kg

DRUGS (2)
  1. ALEVE [Suspect]
     Indication: ARTHRALGIA
  2. ALEVE [Suspect]
     Indication: BACK PAIN

REACTIONS (3)
  - CHEST DISCOMFORT [None]
  - DIZZINESS [None]
  - VERTIGO [None]
